FAERS Safety Report 25584389 (Version 1)
Quarter: 2025Q3

REPORT INFORMATION
  Report Type: Spontaneous
  Country: US (occurrence: US)
  Receive Date: 20250721
  Receipt Date: 20250721
  Transmission Date: 20251021
  Serious: No
  Sender: SANOFI AVENTIS
  Company Number: US-SA-2025SA205672

PATIENT
  Sex: Female

DRUGS (12)
  1. AUBAGIO [Suspect]
     Active Substance: TERIFLUNOMIDE
     Indication: Multiple sclerosis
     Dates: start: 20241025
  2. DIAZEPAM [Concomitant]
     Active Substance: DIAZEPAM
  3. VENLAFAXINE [Concomitant]
     Active Substance: VENLAFAXINE HYDROCHLORIDE
  4. SERTRALINE [Concomitant]
     Active Substance: SERTRALINE HYDROCHLORIDE
  5. MODAFINIL [Concomitant]
     Active Substance: MODAFINIL
  6. SUMATRIPTAN [Concomitant]
     Active Substance: SUMATRIPTAN
  7. TIZANIDINE [Concomitant]
     Active Substance: TIZANIDINE
  8. ALBUTEROL [Concomitant]
     Active Substance: ALBUTEROL
  9. CYCLOSPORINE [Concomitant]
     Active Substance: CYCLOSPORINE
  10. ASPIRIN [Concomitant]
     Active Substance: ASPIRIN
  11. GALCANEZUMAB [Concomitant]
     Active Substance: GALCANEZUMAB
  12. BACLOFEN [Concomitant]
     Active Substance: BACLOFEN

REACTIONS (1)
  - Tremor [Unknown]
